FAERS Safety Report 6096892-3 (Version None)
Quarter: 2009Q1

REPORT INFORMATION
  Report Type: 
  Country: None (occurrence: None)
  Receive Date: 20090227
  Receipt Date: 20090220
  Transmission Date: 20090719
  Serious: Yes (Other)
  Sender: FDA-Public Use
  Company Number: FR-AVENTIS-200812280FR

PATIENT
  Age: 30 Year
  Sex: Female
  Weight: 62 kg

DRUGS (2)
  1. ARAVA [Suspect]
     Route: 048
     Dates: start: 20080226, end: 20080326
  2. ORAL CONTRACEPTIVE DRUG NOS [Concomitant]
     Route: 048
     Dates: end: 20080101

REACTIONS (4)
  - DRUG EXPOSURE DURING PREGNANCY [None]
  - INTENTIONAL DRUG MISUSE [None]
  - LIMB MALFORMATION [None]
  - PREGNANCY [None]
